FAERS Safety Report 7170363-5 (Version None)
Quarter: 2010Q4

REPORT INFORMATION
  Report Type: 
  Country: None (occurrence: None)
  Receive Date: 20101217
  Receipt Date: 20101208
  Transmission Date: 20110411
  Serious: Yes (Other)
  Sender: FDA-Public Use
  Company Number: VE-ROCHE-747026

PATIENT
  Sex: Female
  Weight: 67 kg

DRUGS (2)
  1. AVASTIN [Suspect]
     Indication: BREAST CANCER
     Route: 042
     Dates: start: 20101001
  2. XELODA [Suspect]
     Indication: BREAST CANCER
     Route: 048
     Dates: start: 20101001

REACTIONS (4)
  - DRY SKIN [None]
  - HEADACHE [None]
  - INSOMNIA [None]
  - ONYCHOLYSIS [None]
